FAERS Safety Report 7781983-9 (Version None)
Quarter: 2011Q3

REPORT INFORMATION
  Report Type: 
  Country: None (occurrence: None)
  Receive Date: 20110927
  Receipt Date: 20110914
  Transmission Date: 20111222
  Serious: Yes (Other)
  Sender: FDA-Public Use
  Company Number: PHHY2011BR82552

PATIENT
  Sex: Female

DRUGS (2)
  1. AMLODIPINE BESYLATE [Concomitant]
  2. FORMOTEROL FUMARATE [Suspect]

REACTIONS (2)
  - BLOOD PRESSURE INCREASED [None]
  - VENOUS OCCLUSION [None]
